FAERS Safety Report 13930293 (Version 1)
Quarter: 2017Q3

REPORT INFORMATION
  Report Type: Report from Study
  Country: CO (occurrence: CO)
  Receive Date: 20170901
  Receipt Date: 20170901
  Transmission Date: 20171127
  Serious: Yes (Death, Hospitalization, Other)
  Sender: FDA-Public Use
  Company Number: PHHY2017CO128833

PATIENT
  Age: 72 Year
  Sex: Female

DRUGS (1)
  1. VOTRIENT [Suspect]
     Active Substance: PAZOPANIB HYDROCHLORIDE
     Indication: RENAL CELL CARCINOMA
     Dosage: 400 MG, BID
     Route: 048
     Dates: start: 20170623

REACTIONS (10)
  - Death [Fatal]
  - Blood sodium decreased [Unknown]
  - Depressed mood [Unknown]
  - Haemoglobin decreased [Unknown]
  - Abdominal pain upper [Unknown]
  - Stomach mass [Unknown]
  - Blood potassium decreased [Unknown]
  - Nausea [Unknown]
  - Eating disorder [Unknown]
  - Dental caries [Unknown]

NARRATIVE: CASE EVENT DATE: 20170623
